FAERS Safety Report 21535774 (Version 2)
Quarter: 2022Q4

REPORT INFORMATION
  Report Type: Spontaneous
  Country: DE (occurrence: DE)
  Receive Date: 20221101
  Receipt Date: 20221111
  Transmission Date: 20230113
  Serious: Yes (Other)
  Sender: FDA-Public Use
  Company Number: DE-BoehringerIngelheim-2022-BI-184619

PATIENT
  Sex: Male
  Weight: 92 kg

DRUGS (3)
  1. PRAMIPEXOLE [Suspect]
     Active Substance: PRAMIPEXOLE
     Indication: Restless legs syndrome
     Dosage: 0.52 MILLIGRAM, BID (12 HOURS)
     Route: 065
  2. PRAMIPEXOLE [Suspect]
     Active Substance: PRAMIPEXOLE
     Indication: Parkinson^s disease
  3. CINNARIZINE\DIMENHYDRINATE [Concomitant]
     Active Substance: CINNARIZINE\DIMENHYDRINATE
     Indication: Ear disorder
     Dosage: 20 MILLIGRAM, BID (0.5 DAY)
     Route: 065

REACTIONS (22)
  - Polyneuropathy [Unknown]
  - Dystonia [Unknown]
  - Dizziness [Not Recovered/Not Resolved]
  - Sleep apnoea syndrome [Unknown]
  - Gait disturbance [Unknown]
  - Off label use [Not Recovered/Not Resolved]
  - Tremor [Unknown]
  - Drug ineffective [Unknown]
  - Muscular weakness [Unknown]
  - Blood pressure decreased [Unknown]
  - Osteoarthritis [Unknown]
  - Memory impairment [Unknown]
  - Neuralgia [Unknown]
  - Feeling abnormal [Unknown]
  - Visual impairment [Unknown]
  - Weight increased [Unknown]
  - Myalgia [Unknown]
  - Confusional state [Unknown]
  - Eating disorder [Unknown]
  - Dyskinesia [Unknown]
  - Oedema peripheral [Unknown]
  - Hyperhidrosis [Unknown]
